FAERS Safety Report 5430148-4 (Version None)
Quarter: 2007Q3

REPORT INFORMATION
  Report Type: 
  Country: None (occurrence: None)
  Receive Date: 20070829
  Receipt Date: 20070820
  Transmission Date: 20080115
  Serious: Yes (Hospitalization, Other)
  Sender: FDA-Public Use
  Company Number: JP-ABBOTT-05P-087-0317385-00

PATIENT
  Sex: Male

DRUGS (12)
  1. KALETRA [Suspect]
     Indication: HIV INFECTION
     Route: 048
     Dates: start: 20040515, end: 20060618
  2. NORVIR [Suspect]
     Indication: HIV INFECTION
     Route: 048
     Dates: start: 20060619
  3. LAMIVUDINE [Concomitant]
     Indication: HIV INFECTION
     Route: 048
     Dates: start: 20040515, end: 20060618
  4. STAVUDINE [Concomitant]
     Indication: HIV INFECTION
     Route: 048
     Dates: start: 20040815, end: 20060618
  5. CLARITHROMYCIN [Concomitant]
     Indication: ANTIBIOTIC PROPHYLAXIS
     Route: 048
     Dates: start: 20040416, end: 20040716
  6. CLARITHROMYCIN [Concomitant]
     Route: 048
     Dates: start: 20060605, end: 20060612
  7. CLARITHROMYCIN [Concomitant]
     Route: 048
     Dates: start: 20070107, end: 20070113
  8. BACTRIM [Concomitant]
     Indication: ANTIFUNGAL PROPHYLAXIS
     Route: 048
     Dates: start: 20040126, end: 20050722
  9. BACTRIM [Concomitant]
     Route: 048
     Dates: start: 20070107, end: 20070113
  10. ATAZANAVIR SULFATE [Concomitant]
     Indication: HIV INFECTION
     Route: 048
     Dates: start: 20060619
  11. ABACAVIR W/LAMIVUDINE [Concomitant]
     Indication: HIV INFECTION
     Route: 048
     Dates: start: 20060619
  12. FAROPENEM SODIUM HYDRATE [Concomitant]
     Indication: TONSILLITIS
     Route: 048
     Dates: start: 20070107

REACTIONS (7)
  - BLOOD TRIGLYCERIDES INCREASED [None]
  - CHILLS [None]
  - COUGH [None]
  - FEELING HOT [None]
  - LIVER FUNCTION TEST ABNORMAL [None]
  - RHINORRHOEA [None]
  - TONSILLITIS [None]
